FAERS Safety Report 7321366-9 (Version None)
Quarter: 2011Q1

REPORT INFORMATION
  Report Type: 
  Country: None (occurrence: None)
  Receive Date: 20110228
  Receipt Date: 20100302
  Transmission Date: 20110831
  Serious: No
  Sender: FDA-Public Use
  Company Number: US-PFIZER INC-2010017029

PATIENT
  Age: 30 Year
  Sex: Female

DRUGS (3)
  1. EFFEXOR [Concomitant]
     Dosage: 75 MG, 1X/DAY
     Route: 048
  2. TRAZODONE [Concomitant]
     Dosage: 150 MG, 1X/DAY
     Route: 048
  3. GEODON [Suspect]
     Dosage: 120MG/DAY
     Route: 048
     Dates: start: 20091119, end: 20091208

REACTIONS (3)
  - BREAST DISORDER [None]
  - BREAST TENDERNESS [None]
  - GALACTORRHOEA [None]
